FAERS Safety Report 10474036 (Version 3)
Quarter: 2014Q4

REPORT INFORMATION
  Report Type: Spontaneous
  Country: CI (occurrence: CI)
  Receive Date: 20140924
  Receipt Date: 20141121
  Transmission Date: 20150528
  Serious: Yes (Other)
  Sender: FDA-Public Use
  Company Number: CI-PFIZER INC-2014260694

PATIENT
  Age: 25 Year
  Sex: Female

DRUGS (1)
  1. ADEPAL [Suspect]
     Active Substance: ETHINYL ESTRADIOL\LEVONORGESTREL
     Indication: CONTRACEPTION
     Dosage: UNK, ONCE A DAY
     Route: 048

REACTIONS (2)
  - Hypertension [Recovered/Resolved]
  - Weight increased [Recovered/Resolved]
